FAERS Safety Report 8548561-5 (Version None)
Quarter: 2012Q3

REPORT INFORMATION
  Report Type: 
  Country: None (occurrence: None)
  Receive Date: 20120730
  Receipt Date: 20120718
  Transmission Date: 20120928
  Serious: Yes (Hospitalization)
  Sender: FDA-Public Use
  Company Number: AU-NOVOPROD-356246

PATIENT
  Age: 23 Year
  Sex: Female

DRUGS (3)
  1. NOVORAPID [Suspect]
     Indication: TYPE 1 DIABETES MELLITUS
     Dosage: MEALTIME
     Route: 065
  2. ACTRAPID [Suspect]
     Indication: TYPE 1 DIABETES MELLITUS
     Dosage: UNK
     Route: 042
  3. LEVEMIR [Suspect]
     Indication: TYPE 1 DIABETES MELLITUS
     Dosage: 48 U, QD
     Route: 058

REACTIONS (3)
  - BLOOD PH DECREASED [None]
  - VOMITING [None]
  - DIARRHOEA [None]
